FAERS Safety Report 5701370-4 (Version None)
Quarter: 2008Q2

REPORT INFORMATION
  Report Type: 
  Country: None (occurrence: None)
  Receive Date: 20080407
  Receipt Date: 20080327
  Transmission Date: 20081010
  Serious: Yes (Death, Hospitalization)
  Sender: FDA-Public Use
  Company Number: 144-C5013-07070493

PATIENT
  Age: 52 Year
  Sex: Male
  Weight: 85.5 kg

DRUGS (8)
  1. CC-5013 (LENALIDOMIDE) (CAPSULES) [Suspect]
     Indication: NON-HODGKIN'S LYMPHOMA
     Dosage: 25 MG, EVERY DAY FOR 21 DAYS, ORAL
     Route: 048
     Dates: start: 20070704, end: 20070708
  2. EPOETIN BETA (EPOETIN BETA) [Concomitant]
  3. MAGNESIUM HYDROXIDE TAB [Concomitant]
  4. MAGNESIUM LACTATE (MAGNESIUM LACTATE) [Concomitant]
  5. ACETYLSALICYLIC ACID SRT [Concomitant]
  6. ENOXAPARIN SODIUM [Concomitant]
  7. OMEPRAZOLE [Concomitant]
  8. LORAZEPAM [Concomitant]

REACTIONS (16)
  - ASCITES [None]
  - BLOOD CREATININE INCREASED [None]
  - BLOOD LACTATE DEHYDROGENASE INCREASED [None]
  - BLOOD UREA INCREASED [None]
  - DISEASE PROGRESSION [None]
  - GENERAL PHYSICAL HEALTH DETERIORATION [None]
  - HEPATIC NEOPLASM [None]
  - LYMPHOMA [None]
  - NON-HODGKIN'S LYMPHOMA [None]
  - OESOPHAGEAL CANDIDIASIS [None]
  - PANCYTOPENIA [None]
  - PHARYNGEAL CANDIDIASIS [None]
  - PLEURAL EFFUSION [None]
  - PNEUMONIA [None]
  - PYREXIA [None]
  - SPLENOMEGALY [None]
